FAERS Safety Report 9417071 (Version 1)
Quarter: 2013Q3

REPORT INFORMATION
  Report Type: Spontaneous
  Country: BR (occurrence: BR)
  Receive Date: 20130724
  Receipt Date: 20130724
  Transmission Date: 20140515
  Serious: Yes (Hospitalization)
  Sender: FDA-Public Use
  Company Number: BR-PFIZER INC-2013215555

PATIENT
  Age: 89 Year
  Sex: Female
  Weight: 68 kg

DRUGS (3)
  1. LIPITOR [Suspect]
     Indication: BLOOD CHOLESTEROL ABNORMAL
     Dosage: 10 MG, 1X/DAY
     Route: 048
     Dates: start: 1993
  2. DIOVAN [Concomitant]
     Dosage: UNK
     Dates: start: 1993
  3. FUROSEMIDE [Concomitant]
     Dosage: UNK
     Dates: start: 1993

REACTIONS (1)
  - Femur fracture [Unknown]
